FAERS Safety Report 20524989 (Version 3)
Quarter: 2022Q1

REPORT INFORMATION
  Report Type: Spontaneous
  Country: US (occurrence: US)
  Receive Date: 20220228
  Receipt Date: 20220330
  Transmission Date: 20220423
  Serious: No
  Sender: FDA-Public Use
  Company Number: US-AIMMUNE THERAPEUTICS, INC.-2022AIMT00138

PATIENT

DRUGS (3)
  1. PALFORZIA [Suspect]
     Active Substance: PEANUT
     Indication: Food allergy
     Dosage: 12 MG, ONCE, LAST DOSE PRIOR EVENT OF STOMACH PAIN
     Route: 048
     Dates: start: 20220216, end: 20220216
  2. PALFORZIA [Suspect]
     Active Substance: PEANUT
     Dosage: 6 MG, 1X/DAY, DOSE DECREASED
     Route: 048
     Dates: start: 20220303, end: 20220313
  3. PALFORZIA [Suspect]
     Active Substance: PEANUT
     Dosage: 12 MG, 1X/DAY, RESTARTED
     Route: 048
     Dates: start: 20220314

REACTIONS (2)
  - Abdominal pain upper [Recovered/Resolved]
  - Abdominal pain [Recovered/Resolved]

NARRATIVE: CASE EVENT DATE: 20220216
